FAERS Safety Report 11616387 (Version 2)
Quarter: 2015Q4

REPORT INFORMATION
  Report Type: Report from Study
  Country: JP (occurrence: JP)
  Receive Date: 20151009
  Receipt Date: 20151229
  Transmission Date: 20160304
  Serious: Yes (Death, Other)
  Sender: FDA-Public Use
  Company Number: JP-PFIZER INC-2015310876

PATIENT
  Age: 67 Year
  Sex: Female
  Weight: 61.3 kg

DRUGS (17)
  1. INTRALIPOS [Concomitant]
     Active Substance: SOYBEAN OIL
     Dosage: UNK
     Dates: start: 20140819
  2. ALBUMIN [Concomitant]
     Active Substance: ALBUMIN (HUMAN)
     Dosage: UNK
     Dates: start: 20140630
  3. KCL [Concomitant]
     Active Substance: POTASSIUM CHLORIDE
     Dosage: UNK
     Dates: start: 20140927
  4. TIGECYCLINE. [Suspect]
     Active Substance: TIGECYCLINE
     Dosage: 50 MG, 2X/DAY
     Route: 042
     Dates: start: 20140925
  5. PRODIF [Concomitant]
     Active Substance: FOSFLUCONAZOLE
     Dosage: UNK
     Dates: start: 20140924
  6. TAKEPRON [Concomitant]
     Active Substance: LANSOPRAZOLE
     Dosage: UNK
     Dates: start: 20140626
  7. ZOSYN [Concomitant]
     Active Substance: PIPERACILLIN SODIUM\TAZOBACTAM SODIUM
     Dosage: UNK
     Dates: start: 20140924
  8. NONTHRON [Concomitant]
     Dosage: UNK
     Dates: start: 20140725
  9. MAXIPIME [Concomitant]
     Active Substance: CEFEPIME HYDROCHLORIDE
     Dosage: UNK
     Dates: start: 20141007
  10. HUMULIN R [Concomitant]
     Active Substance: INSULIN HUMAN
     Dosage: UNK
     Dates: start: 20140626
  11. NORADRENALINE HYDROCHLORIDE [Concomitant]
     Active Substance: NORADRENALINE HYDROCHLORIDE
     Dosage: UNK
     Dates: start: 20140626
  12. VOLVIX [Concomitant]
     Dosage: UNK
     Dates: start: 20140908
  13. TIGECYCLINE. [Suspect]
     Active Substance: TIGECYCLINE
     Indication: PERITONEAL ABSCESS
     Dosage: 100 MG, DAILY
     Route: 042
     Dates: start: 20140924, end: 20140924
  14. CRAVIT [Concomitant]
     Active Substance: LEVOFLOXACIN
     Dosage: UNK
     Dates: start: 20140924
  15. ADONA (AC-17) [Concomitant]
     Dosage: UNK
     Dates: start: 20140907
  16. TRANSAMIN [Concomitant]
     Active Substance: TRANEXAMIC ACID
     Dosage: UNK
     Dates: start: 20140907
  17. VITAJECT [Concomitant]
     Active Substance: CYANOCOBALAMIN\PYRIDOXAMINE HYDROCHLORIDE\THIAMINE HYDROCHLORIDE
     Dosage: UNK
     Dates: start: 20140706

REACTIONS (2)
  - Condition aggravated [Fatal]
  - Sepsis [Fatal]

NARRATIVE: CASE EVENT DATE: 20141014
